FAERS Safety Report 7883484-6 (Version None)
Quarter: 2011Q4

REPORT INFORMATION
  Report Type: 
  Country: None (occurrence: None)
  Receive Date: 20111102
  Receipt Date: 20101005
  Transmission Date: 20120403
  Serious: No
  Sender: FDA-Public Use
  Company Number: US-GLAXOSMITHKLINE-A0885023A

PATIENT
  Age: 66 Year
  Sex: Male

DRUGS (5)
  1. LISINOPRIL [Concomitant]
  2. NEXIUM [Concomitant]
  3. PREVACID [Concomitant]
  4. CARTIA XT [Concomitant]
  5. RYTHMOL SR [Suspect]
     Indication: ARRHYTHMIA
     Dosage: 325MG TWICE PER DAY
     Route: 048
     Dates: start: 20100527

REACTIONS (3)
  - SINUS HEADACHE [None]
  - ERUCTATION [None]
  - NAUSEA [None]
